FAERS Safety Report 5345761-2 (Version None)
Quarter: 2007Q2

REPORT INFORMATION
  Report Type: 
  Country: None (occurrence: None)
  Receive Date: 20070601
  Receipt Date: 20070517
  Transmission Date: 20071010
  Serious: Yes (Other)
  Sender: FDA-Public Use
  Company Number: 2007000776

PATIENT
  Age: 55 Year
  Sex: Female

DRUGS (1)
  1. TARCEVA [Suspect]
     Indication: NON-SMALL CELL LUNG CANCER
     Dosage: 150 MG QD, ORAL
     Route: 048
     Dates: start: 20070415, end: 20070415

REACTIONS (6)
  - BRAIN OEDEMA [None]
  - DIARRHOEA [None]
  - NAUSEA [None]
  - RADIATION INJURY [None]
  - RASH [None]
  - VOMITING [None]
